FAERS Safety Report 19560402 (Version 1)
Quarter: 2021Q3

REPORT INFORMATION
  Report Type: Spontaneous
  Country: US (occurrence: US)
  Receive Date: 20210715
  Receipt Date: 20210715
  Transmission Date: 20211014
  Serious: Yes (Other)
  Sender: FDA-Public Use
  Company Number: None

PATIENT
  Age: 61 Year
  Sex: Female

DRUGS (12)
  1. CALCIUM [Concomitant]
     Active Substance: CALCIUM
  2. GABAPENTIN. [Concomitant]
     Active Substance: GABAPENTIN
  3. DULOXETINE. [Concomitant]
     Active Substance: DULOXETINE
  4. MORPHINE SULFATE ER [Concomitant]
     Active Substance: MORPHINE SULFATE
  5. OXYCODONE [Concomitant]
     Active Substance: OXYCODONE
  6. NO DRUG NAME [Concomitant]
  7. CAPECITABINE  500MG [Suspect]
     Active Substance: CAPECITABINE
     Indication: BREAST CANCER
     Dosage: ?          OTHER ROUTE:PO FROM DAY1?14 REST X14?
     Dates: start: 202004
  8. METHOCARBAMOL. [Concomitant]
     Active Substance: METHOCARBAMOL
  9. VITAMIN D [Concomitant]
     Active Substance: VITAMIN D NOS
  10. LORAZEPAM. [Concomitant]
     Active Substance: LORAZEPAM
  11. CETIRIZINE [Concomitant]
     Active Substance: CETIRIZINE HYDROCHLORIDE
  12. SENAKOT [Concomitant]

REACTIONS (3)
  - Stomatitis [None]
  - Neuropathy peripheral [None]
  - Palmar-plantar erythrodysaesthesia syndrome [None]

NARRATIVE: CASE EVENT DATE: 20210628
